FAERS Safety Report 10642843 (Version 1)
Quarter: 2014Q4

REPORT INFORMATION
  Report Type: Spontaneous
  Country: US (occurrence: None)
  Receive Date: 20141209
  Receipt Date: 20141209
  Transmission Date: 20150529
  Serious: Yes (Disabling, Other)
  Sender: FDA-Public Use
  Company Number: None

PATIENT
  Age: 49 Year
  Sex: Female
  Weight: 99.79 kg

DRUGS (1)
  1. LATUDA [Suspect]
     Active Substance: LURASIDONE HYDROCHLORIDE
     Indication: MOOD SWINGS
     Dosage: 40 MG EVERY NIGHT
     Route: 048
     Dates: start: 20140929, end: 20141003

REACTIONS (1)
  - Oromandibular dystonia [None]

NARRATIVE: CASE EVENT DATE: 20141003
